FAERS Safety Report 6213756-2 (Version None)
Quarter: 2009Q2

REPORT INFORMATION
  Report Type: 
  Country: None (occurrence: None)
  Receive Date: 20090602
  Receipt Date: 20090526
  Transmission Date: 20091009
  Serious: Yes (Other)
  Sender: FDA-Public Use
  Company Number: CHPA2009US12268

PATIENT
  Age: 81 Year
  Sex: Female
  Weight: 50.3 kg

DRUGS (1)
  1. EXCEDRIN (MIGRAINE) [Suspect]
     Indication: BACK PAIN
     Dosage: 3-4 DF, QD, ORAL
     Route: 048

REACTIONS (2)
  - INTENTIONAL DRUG MISUSE [None]
  - PANCREATIC CARCINOMA [None]
